FAERS Safety Report 10674067 (Version 1)
Quarter: 2014Q4

REPORT INFORMATION
  Report Type: Spontaneous
  Country: US (occurrence: US)
  Receive Date: 20141224
  Receipt Date: 20141224
  Transmission Date: 20150529
  Serious: Yes (Hospitalization)
  Sender: FDA-Public Use
  Company Number: US-SA-2014SA175197

PATIENT
  Age: 77 Year
  Sex: Male

DRUGS (10)
  1. VITAMIN D3 [Suspect]
     Active Substance: CHOLECALCIFEROL
     Route: 065
  2. LEVEMIR [Suspect]
     Active Substance: INSULIN DETEMIR
     Route: 065
  3. PANTHENOL/RETINOL/THIAMINE HYDROCHLORIDE/ASCORBIC ACID/ERGOCALCIFEROL/FOLIC ACID/RIBOFLAVIN/NICOTINA [Suspect]
     Active Substance: ASCORBIC ACID\ERGOCALCIFEROL\FOLIC ACID\NIACINAMIDE\PANTHENOL\RETINOL\RIBOFLAVIN\THIAMINE HYDROCHLORIDE
     Route: 065
  4. SIMVASTATIN. [Suspect]
     Active Substance: SIMVASTATIN
     Route: 065
  5. LEVOTHYROXINE SODIUM. [Suspect]
     Active Substance: LEVOTHYROXINE SODIUM
     Route: 065
  6. METFORMIN HYDROCHLORIDE. [Suspect]
     Active Substance: METFORMIN HYDROCHLORIDE
     Route: 065
  7. GLIMEPIRIDE. [Suspect]
     Active Substance: GLIMEPIRIDE
     Route: 065
  8. SUTENT [Suspect]
     Active Substance: SUNITINIB MALATE
     Route: 065
     Dates: start: 20140217
  9. IRON [Suspect]
     Active Substance: IRON
     Route: 065
  10. FUROSEMIDE. [Suspect]
     Active Substance: FUROSEMIDE
     Route: 065

REACTIONS (3)
  - Hospitalisation [Unknown]
  - Fall [Unknown]
  - Ankle fracture [Unknown]
